FAERS Safety Report 6756238-1 (Version None)
Quarter: 2010Q2

REPORT INFORMATION
  Report Type: 
  Country: None (occurrence: None)
  Receive Date: 20100604
  Receipt Date: 20100526
  Transmission Date: 20101027
  Serious: Yes (Hospitalization)
  Sender: FDA-Public Use
  Company Number: GXBR2010US01085

PATIENT
  Sex: Female

DRUGS (7)
  1. AMANTADINE HCL [Suspect]
     Indication: FATIGUE
     Dosage: UNK
     Dates: start: 20090101, end: 20091101
  2. REBIF [Suspect]
     Indication: MULTIPLE SCLEROSIS
     Dosage: 44 UG, QW3
     Route: 058
     Dates: start: 20090916
  3. ARICEPT [Suspect]
     Indication: AMNESIA
     Dosage: UNK
     Dates: start: 20090101, end: 20091101
  4. KEPPRA [Concomitant]
     Indication: CONVULSION
     Dosage: 2500 MG, QD
     Dates: start: 20091101
  5. KEPPRA [Concomitant]
     Dosage: UNK
     Dates: start: 20090501, end: 20091101
  6. FLUOXETINE [Concomitant]
     Indication: DEPRESSION
     Dosage: UNK
  7. RISPERDAL [Concomitant]
     Dosage: UNK
     Dates: start: 20090101

REACTIONS (3)
  - CONVULSION [None]
  - MUSCULAR WEAKNESS [None]
  - URINARY TRACT INFECTION [None]
